FAERS Safety Report 8128323-3 (Version None)
Quarter: 2012Q1

REPORT INFORMATION
  Report Type: 
  Country: None (occurrence: None)
  Receive Date: 20120210
  Receipt Date: 20120207
  Transmission Date: 20120608
  Serious: No
  Sender: FDA-Public Use
  Company Number: US-PFIZER INC-2012034657

PATIENT
  Age: 56 Year
  Sex: Female
  Weight: 92.063 kg

DRUGS (7)
  1. COUMADIN [Concomitant]
     Dosage: UNK
  2. PERCOCET [Suspect]
     Dosage: UNK
  3. LETAIRIS [Concomitant]
     Dosage: UNK
  4. REMODULIN [Suspect]
     Indication: PULMONARY HYPERTENSION
     Dosage: 62.64 UG/KG, (0.0435 UG/KG,1 IN 1MIN)
     Route: 058
     Dates: start: 20110913
  5. REVATIO [Suspect]
     Dosage: UNK
  6. GABAPENTIN [Suspect]
     Dosage: UNK
  7. DIGOXIN [Concomitant]
     Dosage: UNK

REACTIONS (5)
  - MALAISE [None]
  - DECREASED APPETITE [None]
  - ASTHENIA [None]
  - INSOMNIA [None]
  - DIZZINESS [None]
